FAERS Safety Report 8818705 (Version 1)
Quarter: 2012Q4

REPORT INFORMATION
  Report Type: 
  Country: US (occurrence: US)
  Receive Date: 20121002
  Receipt Date: 20121002
  Transmission Date: 20130627
  Serious: No
  Sender: FDA-Public Use
  Company Number: US-COVIDIEN/TYCO HEALTHCARE/MALLINCKRODT-T201102369

PATIENT
  Age: 49 Year
  Sex: Male

DRUGS (12)
  1. EXALGO EXTENDED RELEASE [Suspect]
     Indication: POLYNEUROPATHY
     Dosage: 36 mg, qd
     Dates: start: 20110105, end: 20110117
  2. EXALGO EXTENDED RELEASE [Suspect]
     Dosage: 60 mg, qd
     Route: 048
     Dates: start: 20110118, end: 20110228
  3. OPANA ER [Concomitant]
     Indication: NEURALGIA
     Dosage: 120 mg, qd
     Dates: start: 201010, end: 20110105
  4. OXYCONTIN IR [Concomitant]
     Indication: BREAKTHROUGH PAIN
     Dosage: 15 mg, prn
     Dates: start: 1996
  5. ZANAFLEX [Concomitant]
     Indication: MUSCLE SPASMS
     Dosage: 4 mg 8x daily
     Dates: start: 2004
  6. GABAPENTIN [Concomitant]
     Indication: BACK PAIN
     Dosage: 300 mg, qid
     Dates: start: 2004
  7. VITAMIN D /00107901/ [Concomitant]
     Indication: SUPPLEMENTATION THERAPY
     Dosage: 1200 mg, qd
     Dates: start: 2007
  8. DIAZEPAM [Concomitant]
     Indication: ANXIETY
     Dosage: 5 mg 6x daily
     Dates: start: 1995
  9. CYMBALTA [Concomitant]
     Indication: DEPRESSION
     Dosage: 60 mg, qd
     Dates: start: 2007
  10. TEMAZEPAM [Concomitant]
     Indication: ANXIETY
     Dosage: 30 mg, prn
     Dates: start: 2008
  11. REMERON [Concomitant]
     Indication: SLEEP DISORDER
     Dosage: 60 mg, qd
     Dates: start: 2007
  12. TRADNAZONE [Concomitant]
     Indication: SLEEP DISORDER
     Dosage: 150 mg, qd
     Dates: start: 2000

REACTIONS (1)
  - Influenza [Recovered/Resolved]
